FAERS Safety Report 6618761-X (Version None)
Quarter: 2010Q1

REPORT INFORMATION
  Report Type: 
  Country: None (occurrence: None)
  Receive Date: 20100302
  Receipt Date: 20100215
  Transmission Date: 20100710
  Serious: Yes (Disabling)
  Sender: FDA-Public Use
  Company Number: 2010CA0005

PATIENT
  Sex: Male

DRUGS (1)
  1. NITISINONE (NITISINONE) (CAPSULES) [Suspect]
     Indication: TYROSINAEMIA
     Dosage: 0.93 MG/KG (2 MG, 3 IN 1 D), ORAL
     Route: 048
     Dates: start: 20030820

REACTIONS (2)
  - BLOOD CREATINE PHOSPHOKINASE INCREASED [None]
  - DEVELOPMENTAL DELAY [None]
